FAERS Safety Report 4484879-3 (Version None)
Quarter: 2004Q3

REPORT INFORMATION
  Report Type: 
  Country: None (occurrence: None)
  Receive Date: 20040921
  Receipt Date: 20030909
  Transmission Date: 20050211
  Serious: Yes (Hospitalization)
  Sender: FDA-Public Use
  Company Number: 163-20785-03090353

PATIENT
  Age: 49 Year
  Sex: Male
  Weight: 108 kg

DRUGS (6)
  1. THALOMID [Suspect]
     Indication: MULTIPLE MYELOMA
     Dosage: 150 MG, QD, ORAL; 100 MG, QD, ORAL
     Route: 048
     Dates: start: 20010814, end: 20020418
  2. THALOMID [Suspect]
     Indication: MULTIPLE MYELOMA
     Dosage: 150 MG, QD, ORAL; 100 MG, QD, ORAL
     Route: 048
     Dates: start: 20020528
  3. VINCRISTINE [Suspect]
     Indication: MULTIPLE MYELOMA
     Dosage: 1.0-2.0 MG, Q28D
     Dates: start: 20010814, end: 20020418
  4. DOXIL [Suspect]
     Indication: MULTIPLE MYELOMA
     Dosage: 95 MG, Q28D, INTRAVENOUS
     Route: 042
     Dates: start: 20010814, end: 20020418
  5. DECADRON [Suspect]
     Indication: MULTIPLE MYELOMA
     Dosage: 40 MG, X4D Q28D, ORAL
     Route: 048
     Dates: start: 20010814, end: 20020418
  6. PREDNISONE [Suspect]
     Indication: MULTIPLE MYELOMA
     Dosage: 2.5 MG, Q.O.D., ORAL
     Route: 048
     Dates: start: 20020528

REACTIONS (10)
  - ASTHENIA [None]
  - DIZZINESS [None]
  - ELECTROLYTE IMBALANCE [None]
  - FEELING ABNORMAL [None]
  - HYPERGLYCAEMIA [None]
  - MALAISE [None]
  - NAUSEA [None]
  - POLLAKIURIA [None]
  - THIRST [None]
  - VOMITING [None]
